FAERS Safety Report 8959970 (Version 1)
Quarter: 2012Q4

REPORT INFORMATION
  Report Type: Report from Study
  Country: CA (occurrence: CA)
  Receive Date: 20121212
  Receipt Date: 20121212
  Transmission Date: 20130627
  Serious: Yes (Hospitalization)
  Sender: FDA-Public Use
  Company Number: CA-JNJFOC-20121201506

PATIENT
  Age: 51 Year
  Sex: Female
  Weight: 58 kg

DRUGS (3)
  1. REMICADE [Suspect]
     Indication: RHEUMATOID ARTHRITIS
     Route: 042
     Dates: start: 20080809
  2. ANALGESIC NOS [Concomitant]
     Route: 065
  3. ANTIBIOTIC NOS [Concomitant]
     Route: 065

REACTIONS (3)
  - Ovarian cyst [Recovering/Resolving]
  - Infection [Recovering/Resolving]
  - Uterine disorder [Recovering/Resolving]
